FAERS Safety Report 23425002 (Version 9)
Quarter: 2025Q1

REPORT INFORMATION
  Report Type: Spontaneous
  Country: CA (occurrence: CA)
  Receive Date: 20240121
  Receipt Date: 20250210
  Transmission Date: 20250408
  Serious: Yes (Death, Life-Threatening, Hospitalization, Disabling, Congenital Anomaly, Other)
  Sender: NOVARTIS
  Company Number: CA-002147023-NVSC2024CA009091

PATIENT
  Age: 43 Year
  Sex: Female
  Weight: 96 kg

DRUGS (217)
  1. COSENTYX [Suspect]
     Active Substance: SECUKINUMAB
     Indication: Psoriatic arthropathy
     Route: 065
  2. COSENTYX [Suspect]
     Active Substance: SECUKINUMAB
     Indication: Rheumatoid arthritis
     Route: 005
  3. DICLOFENAC POTASSIUM [Suspect]
     Active Substance: DICLOFENAC POTASSIUM
     Indication: Product used for unknown indication
     Route: 065
  4. DICLOFENAC SODIUM [Suspect]
     Active Substance: DICLOFENAC SODIUM
     Indication: Product used for unknown indication
     Route: 058
  5. DICLOFENAC SODIUM [Suspect]
     Active Substance: DICLOFENAC SODIUM
     Route: 065
  6. DICLOFENAC SODIUM [Suspect]
     Active Substance: DICLOFENAC SODIUM
     Route: 065
  7. AIMOVIG [Suspect]
     Active Substance: ERENUMAB-AOOE
     Indication: Migraine
     Route: 065
  8. AIMOVIG [Suspect]
     Active Substance: ERENUMAB-AOOE
     Indication: Rheumatoid arthritis
     Route: 065
  9. ADALIMUMAB [Suspect]
     Active Substance: ADALIMUMAB
     Indication: Rheumatoid arthritis
     Route: 058
  10. ADALIMUMAB [Suspect]
     Active Substance: ADALIMUMAB
     Route: 057
  11. CANDESARTAN [Suspect]
     Active Substance: CANDESARTAN
     Indication: Migraine
     Route: 048
  12. CANDESARTAN [Suspect]
     Active Substance: CANDESARTAN
     Indication: Rheumatoid arthritis
  13. CETIRIZINE HYDROCHLORIDE [Suspect]
     Active Substance: CETIRIZINE HYDROCHLORIDE
     Indication: Rheumatoid arthritis
     Dosage: 25 MG, QW
     Route: 048
  14. CETIRIZINE HYDROCHLORIDE [Suspect]
     Active Substance: CETIRIZINE HYDROCHLORIDE
     Indication: Off label use
     Route: 065
  15. CETIRIZINE HYDROCHLORIDE [Suspect]
     Active Substance: CETIRIZINE HYDROCHLORIDE
     Route: 048
  16. CETIRIZINE HYDROCHLORIDE [Suspect]
     Active Substance: CETIRIZINE HYDROCHLORIDE
     Route: 065
  17. CETIRIZINE HYDROCHLORIDE [Suspect]
     Active Substance: CETIRIZINE HYDROCHLORIDE
     Route: 065
  18. CETIRIZINE HYDROCHLORIDE [Suspect]
     Active Substance: CETIRIZINE HYDROCHLORIDE
     Route: 048
  19. ERELZI [Suspect]
     Active Substance: ETANERCEPT-SZZS
     Indication: Rheumatoid arthritis
     Dosage: 50 MG, QW
     Route: 058
  20. LEFLUNOMIDE [Suspect]
     Active Substance: LEFLUNOMIDE
     Indication: Rheumatoid arthritis
     Dosage: 20 MG, QD
     Route: 065
  21. LEFLUNOMIDE [Suspect]
     Active Substance: LEFLUNOMIDE
     Dosage: 10 MG, QD
     Route: 065
  22. LEFLUNOMIDE [Suspect]
     Active Substance: LEFLUNOMIDE
     Route: 048
  23. OXYCODONE [Suspect]
     Active Substance: OXYCODONE
     Indication: Product used for unknown indication
     Route: 065
  24. RITUXIMAB [Suspect]
     Active Substance: RITUXIMAB
     Indication: Rheumatoid arthritis
     Route: 042
  25. RITUXIMAB [Suspect]
     Active Substance: RITUXIMAB
     Indication: Product used for unknown indication
     Route: 041
  26. RITUXIMAB [Suspect]
     Active Substance: RITUXIMAB
     Route: 065
  27. RITUXIMAB [Suspect]
     Active Substance: RITUXIMAB
     Route: 065
  28. RITUXIMAB [Suspect]
     Active Substance: RITUXIMAB
     Route: 065
  29. ALENDRONIC ACID [Suspect]
     Active Substance: ALENDRONIC ACID
     Indication: Rheumatoid arthritis
     Route: 048
  30. ALENDRONIC ACID [Suspect]
     Active Substance: ALENDRONIC ACID
     Route: 048
  31. ALENDRONIC ACID [Suspect]
     Active Substance: ALENDRONIC ACID
     Route: 005
  32. ALENDRONIC ACID [Suspect]
     Active Substance: ALENDRONIC ACID
     Route: 016
  33. ERENUMAB [Suspect]
     Active Substance: ERENUMAB
     Indication: Migraine
     Route: 065
  34. DICLOFENAC DIETHYLAMINE [Suspect]
     Active Substance: DICLOFENAC DIETHYLAMINE
     Indication: Product used for unknown indication
     Route: 065
  35. MAGNESIUM [Suspect]
     Active Substance: MAGNESIUM
     Indication: Product used for unknown indication
     Route: 065
  36. CALCIUM [Suspect]
     Active Substance: CALCIUM
     Indication: Product used for unknown indication
     Route: 065
  37. CALCIUM [Suspect]
     Active Substance: CALCIUM
     Route: 016
  38. VOLTAREN [Suspect]
     Active Substance: DICLOFENAC SODIUM
     Indication: Product used for unknown indication
     Route: 065
  39. METFORMIN [Suspect]
     Active Substance: METFORMIN HYDROCHLORIDE
     Indication: Migraine
     Route: 065
  40. FOLIC ACID [Suspect]
     Active Substance: FOLIC ACID
     Indication: Rheumatoid arthritis
     Route: 048
  41. FOLIC ACID [Suspect]
     Active Substance: FOLIC ACID
     Route: 065
  42. FOLIC ACID [Suspect]
     Active Substance: FOLIC ACID
     Route: 065
  43. FOLIC ACID [Suspect]
     Active Substance: FOLIC ACID
     Route: 065
  44. FOLIC ACID [Suspect]
     Active Substance: FOLIC ACID
     Route: 065
  45. FOLIC ACID [Suspect]
     Active Substance: FOLIC ACID
     Route: 048
  46. FOLIC ACID [Suspect]
     Active Substance: FOLIC ACID
     Route: 065
  47. INFLIXIMAB [Suspect]
     Active Substance: INFLIXIMAB
     Indication: Rheumatoid arthritis
     Route: 065
  48. METHOTREXATE [Suspect]
     Active Substance: METHOTREXATE
     Indication: Rheumatoid arthritis
     Dosage: 20 MG, QD
     Route: 048
  49. METHOTREXATE [Suspect]
     Active Substance: METHOTREXATE
     Dosage: 25 MG, QW
     Route: 048
  50. METHOTREXATE [Suspect]
     Active Substance: METHOTREXATE
     Route: 048
  51. METHOTREXATE [Suspect]
     Active Substance: METHOTREXATE
     Route: 048
  52. METHOTREXATE [Suspect]
     Active Substance: METHOTREXATE
     Dosage: 15 MG, QD
     Route: 048
  53. METHOTREXATE [Suspect]
     Active Substance: METHOTREXATE
     Route: 048
  54. METHOTREXATE [Suspect]
     Active Substance: METHOTREXATE
     Dosage: 2 G, QD
     Route: 048
  55. METHOTREXATE [Suspect]
     Active Substance: METHOTREXATE
     Dosage: 50 MG, QD
     Route: 048
  56. METHOTREXATE [Suspect]
     Active Substance: METHOTREXATE
     Route: 048
  57. METHOTREXATE [Suspect]
     Active Substance: METHOTREXATE
     Route: 048
  58. METHOTREXATE [Suspect]
     Active Substance: METHOTREXATE
     Route: 048
  59. RAMIPRIL [Suspect]
     Active Substance: RAMIPRIL
     Indication: Rheumatoid arthritis
     Route: 042
  60. RAMIPRIL [Suspect]
     Active Substance: RAMIPRIL
     Route: 016
  61. RAMIPRIL [Suspect]
     Active Substance: RAMIPRIL
     Route: 041
  62. TOPIRAMATE [Suspect]
     Active Substance: TOPIRAMATE
     Indication: Migraine
     Dosage: 1 DOSAGE FORM, BID
     Route: 065
  63. TOPIRAMATE [Suspect]
     Active Substance: TOPIRAMATE
     Dosage: 3 MG, QD
     Route: 065
  64. TOPIRAMATE [Suspect]
     Active Substance: TOPIRAMATE
     Dosage: 25 MG, QD
     Route: 065
  65. TOPIRAMATE [Suspect]
     Active Substance: TOPIRAMATE
     Dosage: 25 MG, BID
     Route: 065
  66. TRAMADOL HYDROCHLORIDE [Suspect]
     Active Substance: TRAMADOL HYDROCHLORIDE
     Indication: Product used for unknown indication
     Route: 065
  67. ACTEMRA [Suspect]
     Active Substance: TOCILIZUMAB
     Indication: Rheumatoid arthritis
     Route: 042
  68. ACTEMRA [Suspect]
     Active Substance: TOCILIZUMAB
     Route: 042
  69. ACTEMRA [Suspect]
     Active Substance: TOCILIZUMAB
     Route: 042
  70. ACTEMRA [Suspect]
     Active Substance: TOCILIZUMAB
     Route: 042
  71. ACTEMRA [Suspect]
     Active Substance: TOCILIZUMAB
     Route: 042
  72. ACTEMRA [Suspect]
     Active Substance: TOCILIZUMAB
     Route: 042
  73. ACTEMRA [Suspect]
     Active Substance: TOCILIZUMAB
     Route: 058
  74. ACTEMRA [Suspect]
     Active Substance: TOCILIZUMAB
     Route: 016
  75. ACTEMRA [Suspect]
     Active Substance: TOCILIZUMAB
     Route: 042
  76. ACETAMINOPHEN AND CODEINE [Suspect]
     Active Substance: ACETAMINOPHEN\CODEINE PHOSPHATE
     Indication: Product used for unknown indication
     Route: 065
  77. ALENDRONATE SODIUM\CHOLECALCIFEROL [Suspect]
     Active Substance: ALENDRONATE SODIUM\CHOLECALCIFEROL
     Indication: Rheumatoid arthritis
     Route: 065
  78. APREMILAST [Suspect]
     Active Substance: APREMILAST
     Indication: Product used for unknown indication
     Dosage: 6 MG, QD (3 MG, Q12H)
     Route: 065
  79. ARAVA [Suspect]
     Active Substance: LEFLUNOMIDE
     Indication: Rheumatoid arthritis
     Dosage: 20 MG, QD
     Route: 048
  80. ARAVA [Suspect]
     Active Substance: LEFLUNOMIDE
     Route: 048
  81. ATOMOXETINE HYDROCHLORIDE [Suspect]
     Active Substance: ATOMOXETINE HYDROCHLORIDE
     Indication: Migraine
     Route: 065
  82. ATOMOXETINE HYDROCHLORIDE [Suspect]
     Active Substance: ATOMOXETINE HYDROCHLORIDE
     Dosage: 2 DOSAGE FORM, QD
     Route: 065
  83. BOTULINUM TOXIN TYPE A [Suspect]
     Active Substance: BOTULINUM TOXIN TYPE A
     Indication: Product used for unknown indication
     Route: 030
  84. BUTRANS [Suspect]
     Active Substance: BUPRENORPHINE
     Indication: Product used for unknown indication
     Route: 065
  85. CELEBREX [Suspect]
     Active Substance: CELECOXIB
     Indication: Rheumatoid arthritis
     Dosage: 1 DOSAGE FORM, QD
     Route: 065
  86. CELEBREX [Suspect]
     Active Substance: CELECOXIB
     Dosage: 2 DOSAGE FORM, QD
     Route: 065
  87. CERTOLIZUMAB PEGOL [Suspect]
     Active Substance: CERTOLIZUMAB PEGOL
     Indication: Psoriasis
     Route: 065
  88. CHLORHEXIDINE GLUCONATE [Suspect]
     Active Substance: CHLORHEXIDINE GLUCONATE
     Indication: Product used for unknown indication
     Route: 065
  89. CHLORHEXIDINE GLUCONATE [Suspect]
     Active Substance: CHLORHEXIDINE GLUCONATE
     Route: 065
  90. CHLORHEXIDINE GLUCONATE [Suspect]
     Active Substance: CHLORHEXIDINE GLUCONATE
     Route: 065
  91. CHOLECALCIFEROL [Suspect]
     Active Substance: CHOLECALCIFEROL
     Indication: Product used for unknown indication
     Route: 065
  92. CHOLECALCIFEROL [Suspect]
     Active Substance: CHOLECALCIFEROL
     Route: 065
  93. CIMZIA [Suspect]
     Active Substance: CERTOLIZUMAB PEGOL
     Indication: Psoriasis
     Route: 058
  94. CIMZIA [Suspect]
     Active Substance: CERTOLIZUMAB PEGOL
     Indication: Rheumatoid arthritis
     Route: 058
  95. CIMZIA [Suspect]
     Active Substance: CERTOLIZUMAB PEGOL
     Route: 058
  96. CIMZIA [Suspect]
     Active Substance: CERTOLIZUMAB PEGOL
     Route: 005
  97. CIMZIA [Suspect]
     Active Substance: CERTOLIZUMAB PEGOL
     Route: 058
  98. CIMZIA [Suspect]
     Active Substance: CERTOLIZUMAB PEGOL
     Route: 058
  99. CORTISONE ACETATE [Suspect]
     Active Substance: CORTISONE ACETATE
     Indication: Rheumatoid arthritis
     Route: 058
  100. CORTISONE ACETATE [Suspect]
     Active Substance: CORTISONE ACETATE
     Route: 065
  101. CORTISONE ACETATE [Suspect]
     Active Substance: CORTISONE ACETATE
     Route: 065
  102. DESOXIMETASONE [Suspect]
     Active Substance: DESOXIMETASONE
     Indication: Rheumatoid arthritis
     Route: 058
  103. DESOXIMETASONE [Suspect]
     Active Substance: DESOXIMETASONE
     Route: 048
  104. DESOXIMETASONE [Suspect]
     Active Substance: DESOXIMETASONE
     Route: 065
  105. DOMPERIDONE MALEATE [Suspect]
     Active Substance: DOMPERIDONE MALEATE
     Indication: Product used for unknown indication
     Route: 065
  106. ENBREL [Suspect]
     Active Substance: ETANERCEPT
     Indication: Rheumatoid arthritis
     Dosage: 50 MG, QW
     Route: 058
  107. ENBREL [Suspect]
     Active Substance: ETANERCEPT
     Dosage: 50 MG, QW
     Route: 065
  108. FLUMETHASONE [Suspect]
     Active Substance: FLUMETHASONE
     Indication: Product used for unknown indication
     Route: 065
  109. FLUMETHASONE PIVALATE [Suspect]
     Active Substance: FLUMETHASONE PIVALATE
     Indication: Product used for unknown indication
     Route: 058
  110. GOLD [Suspect]
     Active Substance: GOLD
     Indication: Product used for unknown indication
     Route: 065
  111. SODIUM AUROTIOSULFATE [Suspect]
     Active Substance: SODIUM AUROTIOSULFATE
     Indication: Product used for unknown indication
     Route: 065
  112. GOLIMUMAB [Suspect]
     Active Substance: GOLIMUMAB
     Indication: Rheumatoid arthritis
     Route: 065
  113. GOLIMUMAB [Suspect]
     Active Substance: GOLIMUMAB
     Indication: Prostatic specific antigen
  114. HUMIRA [Suspect]
     Active Substance: ADALIMUMAB
     Indication: Rheumatoid arthritis
     Route: 057
  115. HYDROCORTISONE ACETATE [Suspect]
     Active Substance: HYDROCORTISONE ACETATE
     Indication: Rheumatoid arthritis
     Route: 058
  116. HYDROCORTISONE ACETATE [Suspect]
     Active Substance: HYDROCORTISONE ACETATE
     Route: 065
  117. HYDROCORTISONE ACETATE [Suspect]
     Active Substance: HYDROCORTISONE ACETATE
     Route: 065
  118. HYDROXYCHLOROQUINE SULFATE [Suspect]
     Active Substance: HYDROXYCHLOROQUINE SULFATE
     Indication: Rheumatoid arthritis
     Dosage: 400 MG, QD
     Route: 048
  119. HYDROXYCHLOROQUINE SULFATE [Suspect]
     Active Substance: HYDROXYCHLOROQUINE SULFATE
     Route: 065
  120. HYDROXYCHLOROQUINE SULFATE [Suspect]
     Active Substance: HYDROXYCHLOROQUINE SULFATE
     Dosage: 1 DOSAGE FORM, QD
     Route: 048
  121. LAMICTAL [Suspect]
     Active Substance: LAMOTRIGINE
     Indication: Product used for unknown indication
     Route: 048
  122. LAMICTAL [Suspect]
     Active Substance: LAMOTRIGINE
     Route: 065
  123. METHYLPREDNISOLONE SODIUM SUCCINATE [Suspect]
     Active Substance: METHYLPREDNISOLONE SODIUM SUCCINATE
     Indication: Product used for unknown indication
     Route: 065
  124. MYRBETRIQ [Suspect]
     Active Substance: MIRABEGRON
     Indication: Product used for unknown indication
     Dosage: 1 DOSAGE FORM, QD (EXTENDED- RELEASE)
     Route: 048
  125. NAPROSYN [Suspect]
     Active Substance: NAPROXEN
     Indication: Product used for unknown indication
     Route: 065
  126. NAPROSYN [Suspect]
     Active Substance: NAPROXEN
     Dosage: 1000 MG, QD
     Route: 065
  127. NAPROSYN [Suspect]
     Active Substance: NAPROXEN
     Dosage: 1000 MG, QD (500 MG BID)
     Route: 065
  128. NAPROXEN SODIUM [Suspect]
     Active Substance: NAPROXEN SODIUM
     Indication: Rheumatoid arthritis
     Route: 065
  129. NUCALA [Suspect]
     Active Substance: MEPOLIZUMAB
     Indication: Product used for unknown indication
     Route: 065
  130. ORENCIA [Suspect]
     Active Substance: ABATACEPT
     Indication: Rheumatoid arthritis
     Route: 042
  131. ORENCIA [Suspect]
     Active Substance: ABATACEPT
     Route: 041
  132. ORENCIA [Suspect]
     Active Substance: ABATACEPT
     Route: 065
  133. ORENCIA [Suspect]
     Active Substance: ABATACEPT
     Route: 058
  134. PHENYLEPHRINE HYDROCHLORIDE [Suspect]
     Active Substance: PHENYLEPHRINE HYDROCHLORIDE
     Indication: Rheumatoid arthritis
     Route: 065
  135. PHENYLEPHRINE HYDROCHLORIDE [Suspect]
     Active Substance: PHENYLEPHRINE HYDROCHLORIDE
     Route: 065
  136. PHENYLEPHRINE HYDROCHLORIDE [Suspect]
     Active Substance: PHENYLEPHRINE HYDROCHLORIDE
     Route: 065
  137. PHTHALYLSULFATHIAZOLE [Suspect]
     Active Substance: PHTHALYLSULFATHIAZOLE
     Indication: Rheumatoid arthritis
     Route: 048
  138. PHTHALYLSULFATHIAZOLE [Suspect]
     Active Substance: PHTHALYLSULFATHIAZOLE
     Route: 065
  139. PHTHALYLSULFATHIAZOLE [Suspect]
     Active Substance: PHTHALYLSULFATHIAZOLE
     Route: 065
  140. PHTHALYLSULFATHIAZOLE [Suspect]
     Active Substance: PHTHALYLSULFATHIAZOLE
     Route: 048
  141. PHTHALYLSULFATHIAZOLE [Suspect]
     Active Substance: PHTHALYLSULFATHIAZOLE
     Route: 065
  142. PHTHALYLSULFATHIAZOLE [Suspect]
     Active Substance: PHTHALYLSULFATHIAZOLE
     Dosage: 2000 MG, QD (1000 MG BID)
     Route: 048
  143. PHTHALYLSULFATHIAZOLE [Suspect]
     Active Substance: PHTHALYLSULFATHIAZOLE
     Route: 058
  144. PREDNISONE [Suspect]
     Active Substance: PREDNISONE
     Indication: Rheumatoid arthritis
     Route: 048
  145. PREDNISONE [Suspect]
     Active Substance: PREDNISONE
     Route: 048
  146. PREDNISONE [Suspect]
     Active Substance: PREDNISONE
     Route: 048
  147. PSEUDOEPHEDRINE HYDROCHLORIDE [Suspect]
     Active Substance: PSEUDOEPHEDRINE HYDROCHLORIDE
     Indication: Rheumatoid arthritis
     Route: 065
  148. PSEUDOEPHEDRINE HYDROCHLORIDE [Suspect]
     Active Substance: PSEUDOEPHEDRINE HYDROCHLORIDE
     Route: 065
  149. PSEUDOEPHEDRINE HYDROCHLORIDE [Suspect]
     Active Substance: PSEUDOEPHEDRINE HYDROCHLORIDE
     Route: 065
  150. RANITIDINE HYDROCHLORIDE [Suspect]
     Active Substance: RANITIDINE HYDROCHLORIDE
     Indication: Rheumatoid arthritis
     Route: 065
  151. CETIRIZINE HYDROCHLORIDE\PSEUDOEPHEDRINE HYDROCHLORIDE [Suspect]
     Active Substance: CETIRIZINE HYDROCHLORIDE\PSEUDOEPHEDRINE HYDROCHLORIDE
     Indication: Product used for unknown indication
     Route: 065
  152. REMICADE [Suspect]
     Active Substance: INFLIXIMAB
     Indication: Rheumatoid arthritis
     Route: 041
  153. REMICADE [Suspect]
     Active Substance: INFLIXIMAB
     Route: 042
  154. DIETARY SUPPLEMENT\HERBALS [Suspect]
     Active Substance: DIETARY SUPPLEMENT\HERBALS
     Indication: Product used for unknown indication
     Route: 065
  155. SIMPONI [Suspect]
     Active Substance: GOLIMUMAB
     Indication: Rheumatoid arthritis
     Route: 058
  156. SIMPONI [Suspect]
     Active Substance: GOLIMUMAB
     Indication: Prostatic specific antigen
     Route: 058
  157. GOLD SODIUM THIOMALATE [Suspect]
     Active Substance: GOLD SODIUM THIOMALATE
     Indication: Product used for unknown indication
     Route: 065
  158. STELARA [Suspect]
     Active Substance: USTEKINUMAB
     Indication: Product used for unknown indication
     Route: 058
  159. SULFASALAZINE [Suspect]
     Active Substance: SULFASALAZINE
     Indication: Rheumatoid arthritis
     Dosage: 1000 MG, Q12H
     Route: 048
  160. SULFASALAZINE [Suspect]
     Active Substance: SULFASALAZINE
     Dosage: 1 G, Q12H
     Route: 048
  161. SULFASALAZINE [Suspect]
     Active Substance: SULFASALAZINE
     Dosage: 300 MG, QD
     Route: 048
  162. SULFASALAZINE [Suspect]
     Active Substance: SULFASALAZINE
     Route: 048
  163. SULFASALAZINE [Suspect]
     Active Substance: SULFASALAZINE
     Dosage: 2 G, QD
     Route: 048
  164. SULFASALAZINE [Suspect]
     Active Substance: SULFASALAZINE
     Route: 048
  165. SULFASALAZINE [Suspect]
     Active Substance: SULFASALAZINE
     Dosage: 1 G, QD
     Route: 058
  166. SULFASALAZINE [Suspect]
     Active Substance: SULFASALAZINE
     Route: 048
  167. SULFASALAZINE [Suspect]
     Active Substance: SULFASALAZINE
     Dosage: 1 DOSAGE FORM, Q12H
     Route: 048
  168. SULFASALAZINE [Suspect]
     Active Substance: SULFASALAZINE
     Dosage: 2000 MG, QD (1000 MG BID)
     Route: 048
  169. SULFASALAZINE [Suspect]
     Active Substance: SULFASALAZINE
     Route: 058
  170. SULFASALAZINE [Suspect]
     Active Substance: SULFASALAZINE
     Route: 065
  171. SULFASALAZINE [Suspect]
     Active Substance: SULFASALAZINE
     Dosage: 4 MG, QD (2 MG BID)
     Route: 058
  172. SULFASALAZINE [Suspect]
     Active Substance: SULFASALAZINE
     Route: 058
  173. SULFASALAZINE [Suspect]
     Active Substance: SULFASALAZINE
     Dosage: 1 G, QD
     Route: 058
  174. SULFASALAZINE [Suspect]
     Active Substance: SULFASALAZINE
     Route: 048
  175. TOCILIZUMAB [Suspect]
     Active Substance: TOCILIZUMAB
     Indication: Rheumatoid arthritis
     Route: 042
  176. TOCILIZUMAB [Suspect]
     Active Substance: TOCILIZUMAB
     Route: 065
  177. TOFACITINIB [Suspect]
     Active Substance: TOFACITINIB
     Indication: Rheumatoid arthritis
     Dosage: 10 MG, QD (5 MG, Q12H)
     Route: 065
  178. TOFACITINIB [Suspect]
     Active Substance: TOFACITINIB
     Dosage: 0.5 MG, QD
     Route: 065
  179. USTEKINUMAB [Suspect]
     Active Substance: USTEKINUMAB
     Indication: Product used for unknown indication
     Route: 058
  180. VITAMIN C [Suspect]
     Active Substance: ASCORBIC ACID
     Indication: Product used for unknown indication
     Route: 065
  181. XELJANZ [Suspect]
     Active Substance: TOFACITINIB CITRATE
     Indication: Rheumatoid arthritis
     Route: 065
  182. XELJANZ [Suspect]
     Active Substance: TOFACITINIB CITRATE
     Dosage: 5 MG, QD
     Route: 065
  183. XELJANZ [Suspect]
     Active Substance: TOFACITINIB CITRATE
     Dosage: 10 MG, QD (5 MG BID)
     Route: 065
  184. XELJANZ [Suspect]
     Active Substance: TOFACITINIB CITRATE
     Route: 065
  185. OXYQUINOLINE SULFATE [Suspect]
     Active Substance: OXYQUINOLINE SULFATE
     Indication: Product used for unknown indication
     Dosage: 1 MG, QD
     Route: 048
  186. OXYQUINOLINE SULFATE [Suspect]
     Active Substance: OXYQUINOLINE SULFATE
     Dosage: 40 MG, QD
     Route: 048
  187. OXYQUINOLINE SULFATE [Suspect]
     Active Substance: OXYQUINOLINE SULFATE
     Dosage: 400 MG, QD
     Route: 048
  188. TOPAMAX [Suspect]
     Active Substance: TOPIRAMATE
     Indication: Migraine
     Dosage: 25 MG, BID
     Route: 048
  189. TOPAMAX [Suspect]
     Active Substance: TOPIRAMATE
     Dosage: 25 MG, QD
     Route: 048
  190. TOPAMAX [Suspect]
     Active Substance: TOPIRAMATE
     Dosage: 1 DOSAGE FORM, QD
     Route: 048
  191. TOPAMAX [Suspect]
     Active Substance: TOPIRAMATE
     Dosage: 3 MG, QD
     Route: 065
  192. TOPAMAX [Suspect]
     Active Substance: TOPIRAMATE
     Dosage: 1 DOSAGE FORM, BID
     Route: 048
  193. TOPAMAX [Suspect]
     Active Substance: TOPIRAMATE
     Route: 065
  194. TOPAMAX [Suspect]
     Active Substance: TOPIRAMATE
     Route: 048
  195. TOPAMAX [Suspect]
     Active Substance: TOPIRAMATE
     Dosage: 25 MG, QD
     Route: 065
  196. MEGLUMINE [Suspect]
     Active Substance: MEGLUMINE
     Indication: Migraine
     Route: 065
  197. MEGLUMINE [Suspect]
     Active Substance: MEGLUMINE
     Route: 042
  198. IRON\VITAMINS [Suspect]
     Active Substance: IRON\VITAMINS
     Indication: Product used for unknown indication
     Route: 065
  199. ALENDRONATE SODIUM\CHOLECALCIFEROL [Suspect]
     Active Substance: ALENDRONATE SODIUM\CHOLECALCIFEROL
     Indication: Rheumatoid arthritis
     Route: 065
  200. CHLORHEXIDINE GLUCONATE\ISOPROPYL ALCOHOL [Suspect]
     Active Substance: CHLORHEXIDINE GLUCONATE\ISOPROPYL ALCOHOL
     Indication: Product used for unknown indication
     Route: 065
  201. CHLORHEXIDINE GLUCONATE\ISOPROPYL ALCOHOL [Suspect]
     Active Substance: CHLORHEXIDINE GLUCONATE\ISOPROPYL ALCOHOL
     Route: 065
  202. CHLORHEXIDINE GLUCONATE\ISOPROPYL ALCOHOL [Suspect]
     Active Substance: CHLORHEXIDINE GLUCONATE\ISOPROPYL ALCOHOL
     Route: 065
  203. HYDROCORTISONE PROBUTATE [Suspect]
     Active Substance: HYDROCORTISONE PROBUTATE
     Indication: Rheumatoid arthritis
     Route: 065
  204. DIETARY SUPPLEMENT [Suspect]
     Active Substance: DIETARY SUPPLEMENT
     Indication: Product used for unknown indication
     Route: 065
  205. CAFFEINE [Suspect]
     Active Substance: CAFFEINE
     Indication: Rheumatoid arthritis
     Dosage: 10 MG, QD
     Route: 065
  206. ACETAMINOPHEN [Suspect]
     Active Substance: ACETAMINOPHEN
     Indication: Product used for unknown indication
     Route: 065
  207. CALCIUM CARBONATE\CHOLECALCIFEROL [Suspect]
     Active Substance: CALCIUM CARBONATE\CHOLECALCIFEROL
     Indication: Product used for unknown indication
     Route: 065
  208. CETIRIZINE HYDROCHLORIDE [Suspect]
     Active Substance: CETIRIZINE HYDROCHLORIDE
     Indication: Rheumatoid arthritis
     Route: 065
  209. CETIRIZINE HYDROCHLORIDE [Suspect]
     Active Substance: CETIRIZINE HYDROCHLORIDE
     Route: 065
  210. CETIRIZINE HYDROCHLORIDE [Suspect]
     Active Substance: CETIRIZINE HYDROCHLORIDE
     Dosage: UNK, QD
     Route: 065
  211. CETIRIZINE HYDROCHLORIDE [Suspect]
     Active Substance: CETIRIZINE HYDROCHLORIDE
     Dosage: UNK, QD ( EVERY 1 DAYS)
     Route: 065
  212. BERINERT [Suspect]
     Active Substance: HUMAN C1-ESTERASE INHIBITOR
     Indication: Product used for unknown indication
     Route: 065
  213. OXYCODONE TEREPHTHALATE [Suspect]
     Active Substance: OXYCODONE TEREPHTHALATE
     Indication: Product used for unknown indication
     Route: 065
  214. CALCIUM [Concomitant]
     Active Substance: CALCIUM
     Indication: Product used for unknown indication
     Route: 065
  215. CALCIUM GLUBIONATE [Concomitant]
     Active Substance: CALCIUM GLUBIONATE
     Indication: Product used for unknown indication
     Route: 065
  216. QUETIAPINE FUMARATE [Concomitant]
     Active Substance: QUETIAPINE FUMARATE
     Indication: Product used for unknown indication
     Route: 065
  217. RISEDRONATE SODIUM [Concomitant]
     Active Substance: RISEDRONATE SODIUM
     Indication: Product used for unknown indication
     Route: 065

REACTIONS (28)
  - Bursitis [Fatal]
  - Fibromyalgia [Fatal]
  - Folliculitis [Fatal]
  - Gastrooesophageal reflux disease [Fatal]
  - General physical health deterioration [Fatal]
  - Glossodynia [Fatal]
  - Hand deformity [Fatal]
  - Helicobacter infection [Fatal]
  - Hepatic enzyme increased [Fatal]
  - Maternal exposure during pregnancy [Fatal]
  - Drug intolerance [Fatal]
  - Hypercholesterolaemia [Fatal]
  - Hypertension [Fatal]
  - Hypoaesthesia [Fatal]
  - Impaired healing [Fatal]
  - Inflammation [Fatal]
  - Infusion related reaction [Fatal]
  - Intentional product use issue [Fatal]
  - Irritable bowel syndrome [Fatal]
  - Joint range of motion decreased [Fatal]
  - Lip dry [Fatal]
  - Live birth [Fatal]
  - Liver injury [Fatal]
  - Lower respiratory tract infection [Fatal]
  - Lung disorder [Fatal]
  - Memory impairment [Fatal]
  - Exposure during pregnancy [Fatal]
  - Pregnancy [Fatal]
